FAERS Safety Report 12974184 (Version 1)
Quarter: 2016Q4

REPORT INFORMATION
  Report Type: Report from Study
  Country: AU (occurrence: AU)
  Receive Date: 20161125
  Receipt Date: 20161125
  Transmission Date: 20170207
  Serious: Yes (Other)
  Sender: FDA-Public Use
  Company Number: AU-BIOGEN-2016BI00318601

PATIENT
  Age: 45 Year
  Sex: Female

DRUGS (2)
  1. TECFIDERA [Suspect]
     Active Substance: DIMETHYL FUMARATE
     Indication: MULTIPLE SCLEROSIS
     Dosage: STARTING DOSE
     Route: 048
     Dates: start: 20161113, end: 201611
  2. TECFIDERA [Suspect]
     Active Substance: DIMETHYL FUMARATE
     Dosage: STARTING DOSE
     Route: 048
     Dates: start: 201611, end: 20161116

REACTIONS (10)
  - Intentional underdose [Recovered/Resolved]
  - Ear swelling [Unknown]
  - Nasal pruritus [Unknown]
  - Flushing [Unknown]
  - Burning sensation [Unknown]
  - Throat irritation [Unknown]
  - Pruritus generalised [Unknown]
  - Anaphylactic reaction [Unknown]
  - Fatigue [Unknown]
  - Oral pruritus [Unknown]

NARRATIVE: CASE EVENT DATE: 20161113
